FAERS Safety Report 10533261 (Version 1)
Quarter: 2014Q4

REPORT INFORMATION
  Report Type: Spontaneous
  Country: US (occurrence: None)
  Receive Date: 20141021
  Receipt Date: 20141021
  Transmission Date: 20150529
  Serious: Yes (Other)
  Sender: FDA-Public Use
  Company Number: None

PATIENT
  Age: 61 Year
  Sex: Female
  Weight: 113.4 kg

DRUGS (10)
  1. VITAMIN D3 [Concomitant]
     Active Substance: CHOLECALCIFEROL
  2. INVOKANA [Suspect]
     Active Substance: CANAGLIFLOZIN
     Indication: INSULIN-REQUIRING TYPE 2 DIABETES MELLITUS
     Dosage: 100MG, 1/DAY, DAILY, BY MOUTH
     Route: 048
     Dates: start: 20140915, end: 20140928
  3. NOVOLOG [Concomitant]
     Active Substance: INSULIN ASPART
  4. CITALOPRAM [Concomitant]
     Active Substance: CITALOPRAM HYDROBROMIDE
  5. LANTUS [Concomitant]
     Active Substance: INSULIN GLARGINE
  6. FLOVENT - MDI [Concomitant]
  7. PROAIR HFA [Concomitant]
     Active Substance: ALBUTEROL SULFATE
  8. ZYRTEC [Concomitant]
     Active Substance: CETIRIZINE HYDROCHLORIDE
  9. VITAMINS NOS [Concomitant]
     Active Substance: VITAMINS
  10. COD LIVER OIL [Concomitant]
     Active Substance: COD LIVER OIL

REACTIONS (7)
  - Pain [None]
  - Parotid gland enlargement [None]
  - Urinary tract infection [None]
  - Dehydration [None]
  - Vulvovaginal mycotic infection [None]
  - Economic problem [None]
  - Parotid duct obstruction [None]

NARRATIVE: CASE EVENT DATE: 20140926
